FAERS Safety Report 8013866-3 (Version None)
Quarter: 2011Q4

REPORT INFORMATION
  Report Type: 
  Country: None (occurrence: None)
  Receive Date: 20111229
  Receipt Date: 20111227
  Transmission Date: 20120403
  Serious: Yes (Other)
  Sender: FDA-Public Use
  Company Number: JP-PFIZER INC-2011266355

PATIENT
  Age: 80 Year
  Sex: Female

DRUGS (9)
  1. AMLODIPINE BESILATE/CANDESARTAN CILEXETIL [Concomitant]
     Dosage: 1 DF, 1X/DAY ([AMLODIPINE BESILATE 5 MG, CANDESARTAN CILEXETIL 8 MG])
     Route: 048
     Dates: start: 20110204
  2. FAMOTIDINE [Concomitant]
     Dosage: 20 MG, 2X/DAY
     Route: 048
  3. LYRICA [Suspect]
     Dosage: 75 MG, SINGLE
     Route: 048
     Dates: start: 20111028, end: 20111028
  4. WARKMIN [Concomitant]
     Dosage: 0.5 UG, 2X/DAY
     Route: 048
     Dates: start: 20070609
  5. SOLETON [Concomitant]
     Dosage: 80 MG, 2X/DAY
     Route: 048
     Dates: start: 20050913
  6. ZOLPIDEM [Concomitant]
     Dosage: 5 MG, 1X/DAY
     Route: 048
     Dates: start: 20090828
  7. MUCOSTA [Concomitant]
     Dosage: 100 MG, 3X/DAY
     Route: 048
  8. GASMOTIN [Concomitant]
     Dosage: 5 MG, 3X/DAY
     Route: 048
  9. ALOSENN [Concomitant]
     Dosage: 2 G, 1X/DAY
     Route: 048

REACTIONS (2)
  - DIZZINESS [None]
  - ABDOMINAL DISCOMFORT [None]
